FAERS Safety Report 8813341 (Version 1)
Quarter: 2012Q4

REPORT INFORMATION
  Report Type: 
  Country: US (occurrence: US)
  Receive Date: 20120927
  Receipt Date: 20120927
  Transmission Date: 20130627
  Serious: No
  Sender: FDA-Public Use
  Company Number: US-AMGEN-USASP2012043786

PATIENT
  Age: 73 Year
  Sex: Female

DRUGS (16)
  1. PROLIA [Suspect]
     Indication: OSTEOPOROSIS
     Dosage: 60 mg, q6mo
     Route: 058
     Dates: start: 20120521
  2. CYCLOBENZAPRINE [Concomitant]
  3. LISINOPRIL [Concomitant]
  4. GABAPENTIN [Concomitant]
  5. SERTRALINE [Concomitant]
  6. ROPINIROLE [Concomitant]
  7. ZOLPIDEM [Concomitant]
  8. BABY ASPIRIN [Concomitant]
  9. CALCIUM WITH VITAMIN D             /00944201/ [Concomitant]
  10. VITAMIN D /00107901/ [Concomitant]
  11. SYNTHROID [Concomitant]
  12. POTASSIUM [Concomitant]
  13. FUROSEMIDE [Concomitant]
  14. ZETIA [Concomitant]
  15. RANITIDINE [Concomitant]
  16. NEXIUM                             /01479302/ [Concomitant]

REACTIONS (7)
  - Urinary incontinence [Recovered/Resolved]
  - Pollakiuria [Recovered/Resolved]
  - Ear pruritus [Recovered/Resolved]
  - Ear discomfort [Recovered/Resolved]
  - Skin exfoliation [Recovered/Resolved]
  - Blister [Recovered/Resolved]
  - Rash [Recovered/Resolved]
